FAERS Safety Report 21718006 (Version 1)
Quarter: 2022Q4

REPORT INFORMATION
  Report Type: Spontaneous
  Country: US (occurrence: US)
  Receive Date: 20221212
  Receipt Date: 20221212
  Transmission Date: 20230112
  Serious: No
  Sender: FDA-Public Use
  Company Number: US-Global Blood Therapeutics Inc-US-GBT-22-03505

PATIENT
  Age: 36 Year
  Sex: Female

DRUGS (2)
  1. OXBRYTA [Suspect]
     Active Substance: VOXELOTOR
     Indication: Sickle cell disease
     Route: 048
     Dates: start: 20210825
  2. TRANSFUSION [Concomitant]
     Indication: Product used for unknown indication
     Dosage: 1 UNIT OF BLOOD
     Dates: start: 202205, end: 202205

REACTIONS (3)
  - Haemoglobin decreased [Unknown]
  - Red blood cell count abnormal [Unknown]
  - Therapy non-responder [Unknown]

NARRATIVE: CASE EVENT DATE: 20220520
